FAERS Safety Report 4575284-X (Version None)
Quarter: 2005Q1

REPORT INFORMATION
  Report Type: 
  Country: None (occurrence: None)
  Receive Date: 20050127
  Receipt Date: 20050127
  Transmission Date: 20050727
  Serious: No
  Sender: FDA-Public Use
  Company Number: None

PATIENT
  Age: 65 Year
  Sex: Female
  Weight: 71.2147 kg

DRUGS (1)
  1. CRESTOR [Suspect]
     Dosage: 1 / DAY ORAL
     Route: 048
     Dates: start: 20040701, end: 20040701

REACTIONS (2)
  - HEPATIC STEATOSIS [None]
  - LIVER FUNCTION TEST ABNORMAL [None]
